FAERS Safety Report 20638797 (Version 1)
Quarter: 2022Q1

REPORT INFORMATION
  Report Type: Spontaneous
  Country: US (occurrence: None)
  Receive Date: 20220325
  Receipt Date: 20220325
  Transmission Date: 20220423
  Serious: No
  Sender: FDA-Public Use
  Company Number: US-MIMS-CORIMC-403

PATIENT
  Age: 14 Year
  Sex: Male
  Weight: 72.57 kg

DRUGS (1)
  1. AZSTARYS [Suspect]
     Active Substance: DEXMETHYLPHENIDATE HYDROCHLORIDE\SERDEXMETHYLPHENIDATE CHLORIDE
     Indication: Attention deficit hyperactivity disorder
     Dosage: 39.2 MG/7.8MG, QD
     Route: 048
     Dates: start: 20211129

REACTIONS (2)
  - Formication [Unknown]
  - Insomnia [Unknown]

NARRATIVE: CASE EVENT DATE: 20211129
